FAERS Safety Report 25468088 (Version 1)
Quarter: 2025Q2

REPORT INFORMATION
  Report Type: Spontaneous
  Country: CN (occurrence: CN)
  Receive Date: 20250623
  Receipt Date: 20250623
  Transmission Date: 20250716
  Serious: Yes (Life-Threatening, Other)
  Sender: PFIZER
  Company Number: CN-PFIZER INC-PV202500073105

PATIENT
  Age: 62 Year
  Sex: Male

DRUGS (2)
  1. EPIRUBICIN [Suspect]
     Active Substance: EPIRUBICIN
     Indication: Chemotherapy
     Dosage: 80 MG, 1X/DAY
     Dates: start: 20250613, end: 20250615
  2. METHOTREXATE SODIUM [Suspect]
     Active Substance: METHOTREXATE SODIUM
     Indication: Bone cancer
     Dosage: 8 G, 1X/DAY
     Route: 041
     Dates: start: 20250316

REACTIONS (5)
  - Alanine aminotransferase increased [Recovered/Resolved]
  - Aspartate aminotransferase increased [Recovered/Resolved]
  - Nausea [Recovered/Resolved]
  - Asthenia [Recovering/Resolving]
  - Off label use [Unknown]

NARRATIVE: CASE EVENT DATE: 20250316
